FAERS Safety Report 14652501 (Version 2)
Quarter: 2018Q1

REPORT INFORMATION
  Report Type: Report from Study
  Country: None (occurrence: RO)
  Receive Date: 20180319
  Receipt Date: 20180320
  Transmission Date: 20180509
  Serious: Yes (Hospitalization)
  Sender: FDA-Public Use
  Company Number: RO-ABBVIE-18K-135-2248538-00

PATIENT
  Age: 68 Year
  Sex: Male

DRUGS (12)
  1. DUODOPA [Suspect]
     Active Substance: CARBIDOPA\LEVODOPA
     Indication: PARKINSON^S DISEASE
     Dosage: DM=8.50 DC=5.30 ED=3.50
     Route: 050
     Dates: start: 20120420
  2. MILGAMMA [Concomitant]
     Active Substance: VITAMIN B
     Indication: POLYNEUROPATHY
     Route: 048
  3. CONTROLOC [Concomitant]
     Active Substance: PANTOPRAZOLE SODIUM
     Indication: PRODUCT USED FOR UNKNOWN INDICATION
     Route: 048
  4. RIVOTRIL [Concomitant]
     Active Substance: CLONAZEPAM
     Indication: INSOMNIA
     Route: 048
  5. PRAMISTAR [Concomitant]
     Active Substance: PRAMIRACETAM SULFATE
     Indication: HYPERTENSION
     Route: 048
  6. GINKOPRIM [Concomitant]
     Indication: PRODUCT USED FOR UNKNOWN INDICATION
     Route: 048
  7. DUODOPA [Suspect]
     Active Substance: CARBIDOPA\LEVODOPA
     Dosage: DM=8.50 DC=4.60 ED=3.50, NRED=1
     Route: 050
  8. LEPONEX [Concomitant]
     Active Substance: CLOZAPINE
     Indication: INSOMNIA
     Route: 048
  9. PENTOXI RETARD [Concomitant]
     Active Substance: PENTOXIFYLLINE
     Indication: PRODUCT USED FOR UNKNOWN INDICATION
     Route: 048
  10. DEVASID [Concomitant]
     Indication: PRODUCT USED FOR UNKNOWN INDICATION
     Route: 048
  11. PROSTAMOL [Concomitant]
     Indication: SPHINCTER OF ODDI DYSFUNCTION
     Route: 048
  12. THIOSSEN [Concomitant]
     Active Substance: THIOCTIC ACID
     Indication: POLYNEUROPATHY
     Route: 048

REACTIONS (2)
  - Stoma site erythema [Recovering/Resolving]
  - Inguinal hernia [Recovered/Resolved]

NARRATIVE: CASE EVENT DATE: 20180130
